FAERS Safety Report 7623382-6 (Version None)
Quarter: 2011Q3

REPORT INFORMATION
  Report Type: 
  Country: None (occurrence: None)
  Receive Date: 20110720
  Receipt Date: 20110712
  Transmission Date: 20111222
  Serious: Yes (Other)
  Sender: FDA-Public Use
  Company Number: US-JNJFOC-20110511198

PATIENT

DRUGS (5)
  1. ANTIBIOTICS NOS [Suspect]
     Indication: INFECTION
     Route: 065
  2. METRONIDAZOLE [Suspect]
     Indication: INFECTION
     Route: 065
  3. LEVAQUIN [Suspect]
     Dosage: 50 BOT
     Route: 065
     Dates: start: 20110407
  4. LEVAQUIN [Suspect]
     Indication: GASTROINTESTINAL INFECTION
     Route: 065
  5. CIPROFLOXACIN [Suspect]
     Indication: INFECTION
     Route: 065

REACTIONS (6)
  - NAUSEA [None]
  - DIZZINESS [None]
  - PRODUCT COUNTERFEIT [None]
  - DRUG INEFFECTIVE [None]
  - AGEUSIA [None]
  - PHOTOSENSITIVITY REACTION [None]
